FAERS Safety Report 14959461 (Version 2)
Quarter: 2018Q2

REPORT INFORMATION
  Report Type: Report from Study
  Country: TR (occurrence: TR)
  Receive Date: 20180531
  Receipt Date: 20180531
  Transmission Date: 20180711
  Serious: Yes (Hospitalization)
  Sender: FDA-Public Use
  Company Number: TR-BAYER-2018-093060

PATIENT
  Sex: Male
  Weight: 76.8 kg

DRUGS (5)
  1. RITUXIMAB. [Suspect]
     Active Substance: RITUXIMAB
     Indication: NON-HODGKIN^S LYMPHOMA RECURRENT
     Dosage: 705 MGX1=705 MG
     Route: 042
     Dates: start: 20180410, end: 20180410
  2. BENDAMUSTINE [Suspect]
     Active Substance: BENDAMUSTINE
     Indication: NON-HODGKIN^S LYMPHOMA RECURRENT
     Dosage: 170 MG X1=170 MG
     Route: 042
     Dates: start: 20180410, end: 20180411
  3. COPANLISIB. [Suspect]
     Active Substance: COPANLISIB
     Indication: NON-HODGKIN^S LYMPHOMA RECURRENT
     Dosage: 60 MGX1=60 MG (C1D1)
     Route: 042
     Dates: start: 20180410, end: 20180410
  4. COPANLISIB. [Suspect]
     Active Substance: COPANLISIB
     Indication: NON-HODGKIN^S LYMPHOMA RECURRENT
     Dosage: 60 MGX1=60 MG (C1D8)
     Route: 042
     Dates: start: 20180417, end: 20180417
  5. COPANLISIB. [Suspect]
     Active Substance: COPANLISIB
     Indication: NON-HODGKIN^S LYMPHOMA RECURRENT
     Dosage: 60 MGX1=60 MG (C1D15)
     Route: 042
     Dates: start: 20180425, end: 20180425

REACTIONS (3)
  - Hepatitis toxic [Not Recovered/Not Resolved]
  - Chronic obstructive pulmonary disease [None]
  - Skin toxicity [Recovering/Resolving]

NARRATIVE: CASE EVENT DATE: 20180427
